FAERS Safety Report 21694126 (Version 1)
Quarter: 2022Q4

REPORT INFORMATION
  Report Type: Spontaneous
  Country: US (occurrence: US)
  Receive Date: 20221207
  Receipt Date: 20221207
  Transmission Date: 20230113
  Serious: No
  Sender: FDA-Public Use
  Company Number: US-ORGANON-O2212USA000323

PATIENT
  Age: 32 Year
  Sex: Female
  Weight: 99 kg

DRUGS (1)
  1. NEXPLANON [Suspect]
     Active Substance: ETONOGESTREL
     Indication: Contraception
     Dosage: 1 IMPLANT OF 68 MG;ONCE
     Route: 059
     Dates: start: 20221114, end: 20221202

REACTIONS (2)
  - Implant site pain [Unknown]
  - Implant site paraesthesia [Unknown]

NARRATIVE: CASE EVENT DATE: 20221202
